FAERS Safety Report 18674134 (Version 1)
Quarter: 2020Q4

REPORT INFORMATION
  Report Type: Spontaneous
  Country: DE (occurrence: DE)
  Receive Date: 20201229
  Receipt Date: 20201229
  Transmission Date: 20210114
  Serious: Yes (Hospitalization)
  Sender: FDA-Public Use
  Company Number: DE-ACCORD-212515

PATIENT
  Age: 60 Year
  Sex: Male

DRUGS (10)
  1. PANTOPRAZOLE [Concomitant]
     Active Substance: PANTOPRAZOLE
     Dosage: 40 MG, 1-0-0-0
  2. PEMETREXED. [Suspect]
     Active Substance: PEMETREXED
     Indication: PRODUCT USED FOR UNKNOWN INDICATION
     Dosage: 780 MG, 22092020
     Dates: end: 20200922
  3. FLUCONAZOLE. [Suspect]
     Active Substance: FLUCONAZOLE
     Indication: PRODUCT USED FOR UNKNOWN INDICATION
     Dosage: 200 MG, DISCONTINUED 15092020
     Dates: end: 20200915
  4. SALBUTAMOL [Concomitant]
     Active Substance: ALBUTEROL
     Dosage: AS REQUIRED
  5. CARBOPLATIN. [Suspect]
     Active Substance: CARBOPLATIN
     Indication: PRODUCT USED FOR UNKNOWN INDICATION
     Dosage: 500 MG, LAST 11082020 NOW PAUSE
     Dates: end: 20200811
  6. PEMBROLIZUMAB. [Suspect]
     Active Substance: PEMBROLIZUMAB
     Indication: PRODUCT USED FOR UNKNOWN INDICATION
     Dosage: 200 MG, 22092020
     Dates: end: 20200922
  7. ACETYLSALICYLIC ACID [Concomitant]
     Active Substance: ASPIRIN
     Dosage: 100 MG, 1-0-0-0
  8. VERAPAMIL [Concomitant]
     Active Substance: VERAPAMIL HYDROCHLORIDE
     Dosage: 40 MG, 1-0-1-0
  9. FOLIC ACID. [Concomitant]
     Active Substance: FOLIC ACID
     Dosage: 5 MG, 1-0-0-0
  10. VILANTEROL TRIFENATATE/UMECLIDINIUM BROMIDE [Concomitant]
     Active Substance: UMECLIDINIUM BROMIDE\VILANTEROL TRIFENATATE
     Dosage: 62.5 25 MCG, 1-0-1-0

REACTIONS (8)
  - Cachexia [Unknown]
  - General physical health deterioration [Unknown]
  - Anaemia [Unknown]
  - Condition aggravated [Unknown]
  - Cough [Unknown]
  - Product dose omission issue [Unknown]
  - Dysphagia [Unknown]
  - Wheezing [Unknown]
